FAERS Safety Report 18978282 (Version 1)
Quarter: 2021Q1

REPORT INFORMATION
  Report Type: Spontaneous
  Country: US (occurrence: US)
  Receive Date: 20210307
  Receipt Date: 20210307
  Transmission Date: 20210420
  Serious: No
  Sender: FDA-Public Use
  Company Number: US-TEVA-2021-US-1886400

PATIENT
  Age: 51 Year

DRUGS (2)
  1. ACTAVIS METOPROLOL SUCCINATE [Suspect]
     Active Substance: METOPROLOL SUCCINATE
     Dosage: 100 MILLIGRAM DAILY;
     Route: 048
  2. ACTAVIS METOPROLOL SUCCINATE [Suspect]
     Active Substance: METOPROLOL SUCCINATE
     Dosage: 100 MILLIGRAM DAILY;
     Route: 048

REACTIONS (2)
  - Migraine [Not Recovered/Not Resolved]
  - Product substitution issue [Unknown]
